FAERS Safety Report 25851312 (Version 2)
Quarter: 2025Q4

REPORT INFORMATION
  Report Type: Spontaneous
  Country: CN (occurrence: CN)
  Receive Date: 20250926
  Receipt Date: 20251010
  Transmission Date: 20260118
  Serious: Yes (Life-Threatening, Hospitalization, Other)
  Sender: Onesource Specialty Pharma
  Company Number: None

PATIENT
  Age: 50 Year
  Sex: Male

DRUGS (4)
  1. MIDAZOLAM [Suspect]
     Active Substance: MIDAZOLAM
     Indication: Product used for unknown indication
     Dosage: 1.5 MILLIGRAM
     Route: 042
     Dates: start: 20231110
  2. ONDANSETRON [Suspect]
     Active Substance: ONDANSETRON
     Indication: Prophylaxis of nausea and vomiting
     Dosage: 4 MILLIGRAM
     Route: 042
     Dates: start: 20231110
  3. DEXAMETHASONE [Suspect]
     Active Substance: DEXAMETHASONE
     Indication: Prophylaxis of nausea and vomiting
     Dosage: 5 MILLIGRAM
     Route: 042
     Dates: start: 20231110
  4. METHYLPREDNISOLONE [Suspect]
     Active Substance: METHYLPREDNISOLONE
     Indication: Product used for unknown indication
     Dosage: 40 MILLIGRAM
     Route: 042
     Dates: start: 20231110

REACTIONS (1)
  - Kounis syndrome [None]

NARRATIVE: CASE EVENT DATE: 20231101
